FAERS Safety Report 5250483-2 (Version None)
Quarter: 2007Q1

REPORT INFORMATION
  Report Type: 
  Country: None (occurrence: None)
  Receive Date: 20070228
  Receipt Date: 20060424
  Transmission Date: 20070707
  Serious: No
  Sender: FDA-Public Use
  Company Number: US-GLAXOSMITHKLINE-A0602986A

PATIENT
  Age: 54 Year
  Sex: Female

DRUGS (4)
  1. LAMICTAL [Suspect]
     Indication: BIPOLAR II DISORDER
     Dosage: 200MG PER DAY
     Route: 048
     Dates: start: 20060204
  2. PREMPRO [Concomitant]
  3. WELLBUTRIN XL [Concomitant]
  4. FLONASE [Concomitant]

REACTIONS (1)
  - MENSTRUAL DISORDER [None]
